FAERS Safety Report 26186339 (Version 1)
Quarter: 2025Q4

REPORT INFORMATION
  Report Type: Spontaneous
  Country: EU (occurrence: EU)
  Receive Date: 20251222
  Receipt Date: 20251222
  Transmission Date: 20260118
  Serious: Yes (Life-Threatening, Other)
  Sender: TEVA
  Company Number: None

PATIENT
  Age: 55 Year
  Sex: Male
  Weight: 74 kg

DRUGS (3)
  1. OLANZAPINE [Suspect]
     Active Substance: OLANZAPINE
     Indication: Anxiety
     Dosage: OLANZAPINE 10 MG/DAY, CLOTIAPINE 5 DROPS IN THE AFTERNOON + 10 DROPS BEFORE BEDTIME, LORAZEPAM 1 ...
     Route: 048
  2. LORAZEPAM [Concomitant]
     Active Substance: LORAZEPAM
     Indication: Insomnia
     Dosage: 1 MG OF LORAZEPAM BEFORE BEDTIME
     Route: 048
  3. CLOTHIAPINE [Concomitant]
     Active Substance: CLOTHIAPINE
     Indication: Anxiety
     Dosage: OLANZAPINE 10 MG/DAY, CLOTIAPINE 5 DROPS IN THE AFTERNOON + 10 DROPS BEFORE BEDTIME, LORAZEPAM 1 ...
     Route: 048

REACTIONS (2)
  - Neuroleptic malignant syndrome [Recovering/Resolving]
  - Tremor [Recovering/Resolving]

NARRATIVE: CASE EVENT DATE: 20251001
